FAERS Safety Report 14080406 (Version 1)
Quarter: 2017Q4

REPORT INFORMATION
  Report Type: Spontaneous
  Country: US (occurrence: US)
  Receive Date: 20171012
  Receipt Date: 20171012
  Transmission Date: 20180321
  Serious: Yes (Life-Threatening)
  Sender: FDA-Public Use
  Company Number: PHHY2017US148846

PATIENT
  Age: 61 Year
  Sex: Male

DRUGS (1)
  1. ENOXAPARIN [Suspect]
     Active Substance: ENOXAPARIN
     Indication: DEEP VEIN THROMBOSIS
     Dosage: UNK UNK, BID
     Route: 065

REACTIONS (5)
  - Tachycardia [Unknown]
  - Peritoneal haemorrhage [Unknown]
  - Splenic rupture [Unknown]
  - Hypotension [Unknown]
  - Abdominal pain [Unknown]
